FAERS Safety Report 21293106 (Version 2)
Quarter: 2022Q3

REPORT INFORMATION
  Report Type: Spontaneous
  Country: NL (occurrence: NL)
  Receive Date: 20220905
  Receipt Date: 20220929
  Transmission Date: 20221027
  Serious: No
  Sender: FDA-Public Use
  Company Number: NL-UCBSA-2022051123

PATIENT
  Sex: Female

DRUGS (1)
  1. NEUPRO [Suspect]
     Active Substance: ROTIGOTINE
     Indication: Product used for unknown indication
     Dosage: 2 MILLIGRAM, ONCE DAILY (QD)
     Route: 062
     Dates: start: 20220112

REACTIONS (4)
  - Condition aggravated [Unknown]
  - Poor quality sleep [Unknown]
  - Incorrect dose administered [Unknown]
  - Product adhesion issue [Unknown]
